FAERS Safety Report 6422093-2 (Version None)
Quarter: 2009Q4

REPORT INFORMATION
  Report Type: 
  Country: None (occurrence: None)
  Receive Date: 20091030
  Receipt Date: 20091027
  Transmission Date: 20100525
  Serious: Yes (Life-Threatening, Hospitalization)
  Sender: FDA-Public Use
  Company Number: DE-JNJFOC-20090905320

PATIENT
  Age: 10 Year
  Sex: Male
  Weight: 30 kg

DRUGS (1)
  1. DURAGESIC-100 [Suspect]
     Indication: EXCORIATION
     Route: 062

REACTIONS (5)
  - DRUG ADMINISTERED AT INAPPROPRIATE SITE [None]
  - LOSS OF CONSCIOUSNESS [None]
  - NARCOTIC INTOXICATION [None]
  - RESPIRATORY DEPRESSION [None]
  - WRONG TECHNIQUE IN DRUG USAGE PROCESS [None]
